FAERS Safety Report 10217484 (Version 1)
Quarter: 2014Q2

REPORT INFORMATION
  Report Type: Spontaneous
  Country: US (occurrence: US)
  Receive Date: 20140604
  Receipt Date: 20140604
  Transmission Date: 20141212
  Serious: No
  Sender: FDA-Public Use
  Company Number: US-ASTRAZENECA-2013SE64470

PATIENT
  Age: 52 Year
  Sex: Female
  Weight: 90.7 kg

DRUGS (28)
  1. VIMOVO [Suspect]
     Indication: PAIN
     Dosage: 500MG/20MG  PRN
     Route: 048
     Dates: start: 2010
  2. OMEPRAZOLE [Suspect]
     Route: 048
  3. PROAIR [Concomitant]
     Indication: ASTHMA
     Dosage: PRN
  4. COPAXONE [Concomitant]
     Indication: MULTIPLE SCLEROSIS
  5. AMPYRA [Concomitant]
     Indication: MULTIPLE SCLEROSIS
     Dosage: BID
  6. CITALOPRAM [Concomitant]
     Indication: ANXIETY
  7. CITALOPRAM [Concomitant]
     Indication: MULTIPLE SCLEROSIS
  8. NUVIGIL [Concomitant]
     Indication: FATIGUE
  9. NUVIGIL [Concomitant]
     Indication: FATIGUE
  10. NEURONTIN [Concomitant]
     Indication: PAIN
  11. IBUPROFEN [Concomitant]
  12. MIGRAINE FORMULA [Concomitant]
  13. NAPROXEN [Concomitant]
  14. ADDERALL [Concomitant]
  15. L-CARNITINE [Concomitant]
  16. VIT D [Concomitant]
  17. ASPIRIN [Concomitant]
  18. ACETOMIAPHEN [Concomitant]
  19. CAFFEINE [Concomitant]
  20. MIRALAX [Concomitant]
  21. DULCOLAX [Concomitant]
  22. FIBER CAPSULES [Concomitant]
  23. COD LIVER OIL [Concomitant]
  24. FISH OIL [Concomitant]
  25. MULTI VITAMIN [Concomitant]
  26. B COMPLEX [Concomitant]
  27. TRILEPTAL [Concomitant]
     Indication: SKIN BURNING SENSATION
  28. AMANTADINE [Concomitant]
     Indication: FATIGUE

REACTIONS (14)
  - Trigeminal neuralgia [Unknown]
  - Pain in jaw [Unknown]
  - Impaired work ability [Unknown]
  - Pain [Unknown]
  - Musculoskeletal pain [Unknown]
  - Arthralgia [Unknown]
  - Arthralgia [Unknown]
  - Arthralgia [Unknown]
  - Arthralgia [Unknown]
  - Arthralgia [Unknown]
  - Arthralgia [Unknown]
  - Arthralgia [Unknown]
  - Arthralgia [Unknown]
  - Intentional product misuse [Unknown]
